FAERS Safety Report 9250834 (Version 1)
Quarter: 2013Q1

REPORT INFORMATION
  Report Type: Spontaneous
  Country: US (occurrence: None)
  Receive Date: 20130305
  Receipt Date: 20130305
  Transmission Date: 20140127
  Serious: No
  Sender: FDA-Public Use
  Company Number: 163-21880-12090262

PATIENT
  Age: 68 Year
  Sex: Female
  Weight: 74.84 kg

DRUGS (6)
  1. REVLIMID [Suspect]
     Indication: MYELODYSPLASTIC SYNDROME
     Dosage: 10 MG, 21 IN 21 D, PO
     Route: 048
     Dates: start: 20120831, end: 20120902
  2. PROCRIT [Concomitant]
  3. ATENOLOL(ATENOLOL) [Concomitant]
  4. FOLIC ACID(FOLIC ACID) [Concomitant]
  5. VIT B12(CYANOCOBALAMIN) [Concomitant]
  6. PEPCID(FAMOTIDINE) [Concomitant]

REACTIONS (3)
  - Eyelid oedema [None]
  - Pruritus [None]
  - Back pain [None]
